FAERS Safety Report 7352368-4 (Version None)
Quarter: 2011Q1

REPORT INFORMATION
  Report Type: 
  Country: None (occurrence: None)
  Receive Date: 20110309
  Receipt Date: 20110309
  Transmission Date: 20110831
  Serious: Yes (Hospitalization)
  Sender: FDA-Public Use
  Company Number: None

PATIENT
  Sex: Male
  Weight: 81 kg

DRUGS (4)
  1. CALCIUM CARBONATE [Suspect]
     Dosage: 600 MG
  2. GOSERELIN [Concomitant]
  3. ZOMETA [Suspect]
     Dosage: 3.5 MG
  4. VITAMIN D2 [Suspect]
     Dosage: 400 MG

REACTIONS (5)
  - CARDIAC FAILURE [None]
  - FATIGUE [None]
  - FAILURE TO THRIVE [None]
  - PROSTATE CANCER METASTATIC [None]
  - PLEURAL EFFUSION [None]
